FAERS Safety Report 4359904-0 (Version None)
Quarter: 2004Q2

REPORT INFORMATION
  Report Type: 
  Country: None (occurrence: None)
  Receive Date: 20040518
  Receipt Date: 20040510
  Transmission Date: 20050107
  Serious: Yes (Hospitalization)
  Sender: FDA-Public Use
  Company Number: US-BRISTOL-MYERS SQUIBB COMPANY-12583522

PATIENT
  Age: 80 Year
  Sex: Female

DRUGS (5)
  1. SINEMET LP TABS 25 MG/100 MG [Suspect]
     Indication: PARKINSON'S DISEASE
     Dosage: DOSE VALUE:  2 TABS TID, CUT TO 1 TAB TID
  2. MEGACE [Concomitant]
  3. LOPRESSOR [Concomitant]
  4. EPOGEN [Concomitant]
  5. VITAMIN CAP [Concomitant]

REACTIONS (6)
  - ABDOMINAL PAIN UPPER [None]
  - ANOREXIA [None]
  - APHASIA [None]
  - DEPRESSION [None]
  - HIP FRACTURE [None]
  - MOANING [None]
